FAERS Safety Report 9208784 (Version 2)
Quarter: 2013Q2

REPORT INFORMATION
  Report Type: Spontaneous
  Country: US (occurrence: US)
  Receive Date: 20130404
  Receipt Date: 20130508
  Transmission Date: 20140414
  Serious: No
  Sender: FDA-Public Use
  Company Number: US-PFIZER INC-2013105520

PATIENT
  Age: 28 Year
  Sex: Female

DRUGS (3)
  1. PRISTIQ [Suspect]
     Dosage: 50 MG, 1X/DAY (ONCE PER DAY)
  2. CLONAZEPAM [Concomitant]
     Dosage: 1 MG, UNK
  3. MONONESSA [Concomitant]
     Indication: CONTRACEPTION
     Dosage: UNK

REACTIONS (2)
  - Depression [Unknown]
  - Psychomotor hyperactivity [Unknown]
